FAERS Safety Report 11886146 (Version 5)
Quarter: 2019Q4

REPORT INFORMATION
  Report Type: Spontaneous
  Country: US (occurrence: US)
  Receive Date: 20160104
  Receipt Date: 20191119
  Transmission Date: 20200122
  Serious: Yes (Hospitalization, Other)
  Sender: FDA-Public Use
  Company Number: US-PFIZER INC-2015442226

PATIENT
  Age: 60 Year
  Sex: Female

DRUGS (1)
  1. XELJANZ [Suspect]
     Active Substance: TOFACITINIB CITRATE
     Dosage: 5 MG, UNK

REACTIONS (6)
  - Upper limb fracture [Unknown]
  - Malaise [Recovering/Resolving]
  - Pneumonia [Unknown]
  - Dry mouth [Unknown]
  - Fall [Unknown]
  - Lower respiratory tract infection bacterial [Unknown]
